FAERS Safety Report 17924194 (Version 3)
Quarter: 2020Q3

REPORT INFORMATION
  Report Type: Report from Study
  Country: CO (occurrence: CO)
  Receive Date: 20200622
  Receipt Date: 20200709
  Transmission Date: 20201103
  Serious: Yes (Life-Threatening, Hospitalization, Other)
  Sender: FDA-Public Use
  Company Number: NVSC2020CO174193

PATIENT
  Age: 52 Year
  Sex: Male
  Weight: 56 kg

DRUGS (3)
  1. RIFAXIMIN. [Concomitant]
     Active Substance: RIFAXIMIN
     Indication: HEPATIC CIRRHOSIS
     Dosage: 200 MG, Q8H
     Route: 048
     Dates: start: 201912
  2. REVOLADE [Suspect]
     Active Substance: ELTROMBOPAG
     Indication: IMMUNE THROMBOCYTOPENIA
     Dosage: 75 MG, QD
     Route: 048
     Dates: start: 202003, end: 20200602
  3. CARVEDILOL. [Suspect]
     Active Substance: CARVEDILOL
     Indication: CARDIAC DISORDER
     Dosage: 6.25 MG, Q12H
     Route: 048

REACTIONS (11)
  - Abdominal pain [Unknown]
  - Gastric varices haemorrhage [Unknown]
  - Hepatic cancer [Unknown]
  - Terminal state [Unknown]
  - Yellow skin [Unknown]
  - Haematochezia [Unknown]
  - Fluid retention [Unknown]
  - Haematemesis [Unknown]
  - Nausea [Unknown]
  - Metastases to liver [Unknown]
  - Device related sepsis [Unknown]

NARRATIVE: CASE EVENT DATE: 202004
